FAERS Safety Report 7946783-5 (Version None)
Quarter: 2011Q4

REPORT INFORMATION
  Report Type: 
  Country: None (occurrence: None)
  Receive Date: 20111129
  Receipt Date: 20111117
  Transmission Date: 20120403
  Serious: Yes (Hospitalization)
  Sender: FDA-Public Use
  Company Number: NO-ELI_LILLY_AND_COMPANY-NO201102000571

PATIENT
  Sex: Male

DRUGS (7)
  1. ESCITALOPRAM [Concomitant]
     Dosage: 10 MG, 2/D
     Route: 048
  2. OLANZAPINE [Suspect]
     Indication: SCHIZOPHRENIA
     Dosage: 405 MG, OTHER (14 TH DAY)
     Route: 030
     Dates: start: 20090101
  3. LITHIUM [Concomitant]
     Dosage: 2 MG, 2/D
     Route: 048
  4. ZYRTEC [Concomitant]
     Dosage: 10 MG, DAILY (1/D)
     Route: 048
  5. OLANZAPINE [Suspect]
     Dosage: 405 MG, EVERY 10 DAYS
     Route: 030
  6. HALDOL [Concomitant]
     Dosage: 2 MG, QD
     Route: 048
  7. AKINETON [Concomitant]
     Dosage: 2 MG, QD
     Route: 048

REACTIONS (6)
  - SOMNOLENCE [None]
  - DYSKINESIA [None]
  - INSOMNIA [None]
  - DYSARTHRIA [None]
  - RESTLESSNESS [None]
  - OVERDOSE [None]
